FAERS Safety Report 9314550 (Version 2)
Quarter: 2013Q2

REPORT INFORMATION
  Report Type: Spontaneous
  Country: GA (occurrence: GA)
  Receive Date: 20130529
  Receipt Date: 20130626
  Transmission Date: 20140414
  Serious: Yes (Life-Threatening, Hospitalization)
  Sender: FDA-Public Use
  Company Number: GA-PFIZER INC-2013162736

PATIENT
  Age: 20 Year
  Sex: Female

DRUGS (1)
  1. ARTOTEC [Suspect]
     Indication: ABORTION
     Dosage: 1200 MG, ONCE DAILY
     Route: 067
     Dates: start: 20130511, end: 20130511

REACTIONS (3)
  - Off label use [Unknown]
  - Induced abortion haemorrhage [Unknown]
  - Shock [Unknown]
